FAERS Safety Report 7743161-9 (Version None)
Quarter: 2011Q3

REPORT INFORMATION
  Report Type: 
  Country: None (occurrence: None)
  Receive Date: 20110912
  Receipt Date: 20110905
  Transmission Date: 20111222
  Serious: Yes (Hospitalization)
  Sender: FDA-Public Use
  Company Number: JP-EISAI INC-E2090-01714-SPO-JP

PATIENT
  Sex: Female

DRUGS (2)
  1. PHENOBARBITAL TAB [Concomitant]
     Dosage: 60 MG
     Route: 048
     Dates: start: 20090623, end: 20100701
  2. ZONISAMIDE [Suspect]
     Route: 048
     Dates: start: 20100702, end: 20100726

REACTIONS (1)
  - DRUG RASH WITH EOSINOPHILIA AND SYSTEMIC SYMPTOMS [None]
